FAERS Safety Report 9303416 (Version 2)
Quarter: 2013Q2

REPORT INFORMATION
  Report Type: Spontaneous
  Country: US (occurrence: US)
  Receive Date: 20130522
  Receipt Date: 20130614
  Transmission Date: 20140414
  Serious: Yes (Other)
  Sender: FDA-Public Use
  Company Number: US-BAYER-2013-063466

PATIENT
  Age: 51 Year
  Sex: Female
  Weight: 74.38 kg

DRUGS (3)
  1. YAZ [Suspect]
     Indication: MUSCLE SPASMS
  2. YASMIN [Suspect]
  3. GIANVI [Suspect]

REACTIONS (1)
  - Deep vein thrombosis [None]
